FAERS Safety Report 8149878-9 (Version None)
Quarter: 2012Q1

REPORT INFORMATION
  Report Type: 
  Country: None (occurrence: None)
  Receive Date: 20120218
  Receipt Date: 20120111
  Transmission Date: 20120608
  Serious: No
  Sender: FDA-Public Use
  Company Number: US-ALLERGAN-1116447US

PATIENT
  Age: 54 Year
  Sex: Female

DRUGS (1)
  1. BOTOX COSMETIC [Suspect]
     Indication: SKIN WRINKLING
     Dosage: 63 UNITS, SINGLE, 30 UNITS GLABELLA, 8 UNITS FOREHEAD, 20 UNITS CROWS FEET, 5 UNITS UPPER LIP
     Route: 030
     Dates: start: 20111121, end: 20111121

REACTIONS (2)
  - EYELID PTOSIS [None]
  - DIPLOPIA [None]
